FAERS Safety Report 8720567 (Version 2)
Quarter: 2015Q2

REPORT INFORMATION
  Report Type: Report from Study
  Country: US (occurrence: US)
  Receive Date: 20120813
  Receipt Date: 20150630
  Transmission Date: 20150821
  Serious: Yes (Hospitalization)
  Sender: FDA-Public Use
  Company Number: US-ROCHE-1098834

PATIENT
  Age: 51 Year
  Sex: Male

DRUGS (11)
  1. MORPHINE SULFATE. [Concomitant]
     Active Substance: MORPHINE SULFATE
     Route: 042
  2. RESTORIL (UNITED STATES) [Concomitant]
     Dosage: 15-30 MG AT BEDTIME PRN SLEEP
     Route: 048
  3. HEPARIN [Concomitant]
     Active Substance: HEPARIN SODIUM
     Dosage: 1200U/HR
     Route: 041
  4. LIDOCAINE. [Concomitant]
     Active Substance: LIDOCAINE
     Route: 040
  5. MORPHINE [Concomitant]
     Active Substance: MORPHINE
  6. LIDOCAINE. [Concomitant]
     Active Substance: LIDOCAINE
     Route: 040
  7. ACTIVASE [Suspect]
     Active Substance: ALTEPLASE
     Indication: MYOCARDIAL INFARCTION
     Route: 041
  8. SURFAK (UNITED STATES) [Concomitant]
     Route: 048
  9. TYLENOL #1 (UNITED STATES) [Concomitant]
     Route: 048
  10. NITROSTAT [Concomitant]
     Active Substance: NITROGLYCERIN
     Dosage: S.L. AT BEDSIDE PRN
     Route: 065
  11. HEPARIN [Concomitant]
     Active Substance: HEPARIN SODIUM
     Route: 065

REACTIONS (6)
  - White blood cell count increased [Unknown]
  - Bradycardia [Unknown]
  - Pain in extremity [Unknown]
  - Vomiting [Unknown]
  - Blood cholesterol increased [Unknown]
  - Dyspnoea [Unknown]
